FAERS Safety Report 9276213 (Version 2)
Quarter: 2013Q3

REPORT INFORMATION
  Report Type: Spontaneous
  Country: US (occurrence: US)
  Receive Date: 20130507
  Receipt Date: 20130703
  Transmission Date: 20140515
  Serious: No
  Sender: FDA-Public Use
  Company Number: US-009507513-1305USA002834

PATIENT
  Age: 69 Year
  Sex: Female
  Weight: 79.37 kg

DRUGS (6)
  1. CLARITIN LIQUIGELS [Suspect]
     Indication: EYE PRURITUS
     Dosage: 10 MG, QD
     Route: 048
     Dates: start: 20130411, end: 20130506
  2. CLARITIN LIQUIGELS [Suspect]
     Indication: LACRIMATION INCREASED
  3. CLARITIN LIQUIGELS [Suspect]
     Indication: HYPERSENSITIVITY
  4. CLARITIN LIQUIGELS [Suspect]
     Indication: MEDICAL OBSERVATION
  5. PRAVASTATIN SODIUM [Concomitant]
     Indication: BLOOD CHOLESTEROL
     Dosage: UNK, UNKNOWN
  6. ASPIRIN [Concomitant]
     Indication: PRODUCT USED FOR UNKNOWN INDICATION
     Dosage: UNK, UNKNOWN

REACTIONS (1)
  - Drug ineffective [Unknown]
